FAERS Safety Report 19239686 (Version 1)
Quarter: 2021Q2

REPORT INFORMATION
  Report Type: Spontaneous
  Country: NL (occurrence: DE)
  Receive Date: 20210510
  Receipt Date: 20210510
  Transmission Date: 20210717
  Serious: Yes (Hospitalization, Other)
  Sender: FDA-Public Use
  Company Number: DE-FRESENIUS KABI-FK202104618

PATIENT
  Age: 71 Year
  Sex: Male

DRUGS (27)
  1. CARBOPLATIN (MANUFACTURER UNKNOWN) [Suspect]
     Active Substance: CARBOPLATIN
     Dosage: 500 MG/M2, D4, Q3W
     Route: 065
     Dates: start: 20191007
  2. PEMETREXED (MANUFACTURER UNKNOWN) [Suspect]
     Active Substance: PEMETREXED
     Dosage: 500 MG/M2, D2, Q3W
     Route: 065
     Dates: start: 20190826
  3. PEMBROLIZUMAB. [Suspect]
     Active Substance: PEMBROLIZUMAB
     Dosage: 200 MG, D7, Q3W
     Route: 065
     Dates: start: 20200316
  4. PEMBROLIZUMAB. [Suspect]
     Active Substance: PEMBROLIZUMAB
     Dosage: 200 MG, D3, Q3W
     Route: 065
     Dates: start: 20190916
  5. PEMBROLIZUMAB. [Suspect]
     Active Substance: PEMBROLIZUMAB
     Dosage: 200 MG, D4, Q3W
     Route: 065
     Dates: start: 20200203
  6. PEMBROLIZUMAB. [Suspect]
     Active Substance: PEMBROLIZUMAB
     Dosage: 200 MG, D6, Q3W
     Route: 065
     Dates: start: 20200316
  7. PEMBROLIZUMAB. [Suspect]
     Active Substance: PEMBROLIZUMAB
     Dosage: 200 MG, Q3W
     Route: 065
     Dates: start: 20201009
  8. PEMETREXED (MANUFACTURER UNKNOWN) [Suspect]
     Active Substance: PEMETREXED
     Dosage: 500 MG/M2, D4, Q3W
     Route: 065
     Dates: start: 20191007
  9. PEMBROLIZUMAB. [Suspect]
     Active Substance: PEMBROLIZUMAB
     Dosage: 200 MG, D1, Q3W
     Route: 065
     Dates: start: 20190805
  10. PEMBROLIZUMAB. [Suspect]
     Active Substance: PEMBROLIZUMAB
     Dosage: 200 MG, Q3W
     Route: 065
     Dates: start: 20200724
  11. DENOSUMAB [Suspect]
     Active Substance: DENOSUMAB
     Indication: PRODUCT USED FOR UNKNOWN INDICATION
     Dosage: 120 MILLIGRAM, EVERY 4 WEEKS
     Route: 065
     Dates: start: 20190809
  12. PEMETREXED (MANUFACTURER UNKNOWN) [Suspect]
     Active Substance: PEMETREXED
     Dosage: 500 MG/M2, D3, Q3W
     Route: 065
     Dates: start: 20190916
  13. PEMBROLIZUMAB. [Suspect]
     Active Substance: PEMBROLIZUMAB
     Dosage: 200 MG, D9, Q3W
     Route: 065
     Dates: start: 20200316
  14. PEMBROLIZUMAB. [Suspect]
     Active Substance: PEMBROLIZUMAB
     Dosage: 200 MG, D8, Q3W
     Route: 065
     Dates: start: 20200316
  15. CARBOPLATIN (MANUFACTURER UNKNOWN) [Suspect]
     Active Substance: CARBOPLATIN
     Indication: PRODUCT USED FOR UNKNOWN INDICATION
     Dosage: 500 MG/M2, D1, Q3W
     Route: 065
     Dates: start: 20190805
  16. PEMETREXED (MANUFACTURER UNKNOWN) [Suspect]
     Active Substance: PEMETREXED
     Indication: PRODUCT USED FOR UNKNOWN INDICATION
     Dosage: 500 MG/M2, D1, Q3W
     Route: 065
     Dates: start: 20190805
  17. PEMBROLIZUMAB. [Suspect]
     Active Substance: PEMBROLIZUMAB
     Dosage: 200 MG, D10, Q3W
     Route: 065
     Dates: start: 20200703
  18. PEMBROLIZUMAB. [Suspect]
     Active Substance: PEMBROLIZUMAB
     Dosage: 200 MG, Q3W
     Route: 065
     Dates: start: 20200918
  19. PEMBROLIZUMAB. [Suspect]
     Active Substance: PEMBROLIZUMAB
     Dosage: 200 MG, Q3W
     Route: 065
     Dates: start: 20210115
  20. INSULIN [Concomitant]
     Active Substance: INSULIN NOS
     Indication: TYPE 2 DIABETES MELLITUS
     Route: 065
  21. CARBOPLATIN (MANUFACTURER UNKNOWN) [Suspect]
     Active Substance: CARBOPLATIN
     Dosage: 500 MG/M2, D2, Q3W
     Route: 065
     Dates: start: 20190826
  22. PEMBROLIZUMAB. [Suspect]
     Active Substance: PEMBROLIZUMAB
     Indication: NON-SMALL CELL LUNG CANCER
     Dosage: 200 MG, Q3W
     Route: 065
     Dates: start: 20201218
  23. CARBOPLATIN (MANUFACTURER UNKNOWN) [Suspect]
     Active Substance: CARBOPLATIN
     Dosage: 500 MG/M2, D3, Q3W
     Route: 065
     Dates: start: 20190916
  24. PEMBROLIZUMAB. [Suspect]
     Active Substance: PEMBROLIZUMAB
     Dosage: 200 MG, Q3W
     Route: 065
     Dates: start: 20210419
  25. PEMBROLIZUMAB. [Suspect]
     Active Substance: PEMBROLIZUMAB
     Dosage: 200 MG, D2, Q3W
     Route: 065
     Dates: start: 20190826
  26. PEMBROLIZUMAB. [Suspect]
     Active Substance: PEMBROLIZUMAB
     Dosage: 200 MG, D3, Q3W
     Route: 065
     Dates: start: 20191223
  27. PEMBROLIZUMAB. [Suspect]
     Active Substance: PEMBROLIZUMAB
     Dosage: 200 MG, D4, Q3W
     Route: 065
     Dates: start: 20191007

REACTIONS (10)
  - Stasis dermatitis [Unknown]
  - Malignant neoplasm progression [Unknown]
  - Chest X-ray abnormal [Unknown]
  - Osteoarthritis [Unknown]
  - Pleural effusion [Unknown]
  - Erysipelas [Recovered/Resolved]
  - Arthritis [Recovered/Resolved]
  - Fatigue [Unknown]
  - Oedema peripheral [Unknown]
  - Diabetic foot [Unknown]

NARRATIVE: CASE EVENT DATE: 20190826
